FAERS Safety Report 5036269-2 (Version None)
Quarter: 2006Q2

REPORT INFORMATION
  Report Type: 
  Country: None (occurrence: None)
  Receive Date: 20060601
  Receipt Date: 20060501
  Transmission Date: 20061013
  Serious: No
  Sender: FDA-Public Use
  Company Number: US200605000305

PATIENT
  Sex: Female

DRUGS (3)
  1. CYMBALTA [Suspect]
     Indication: ANXIETY DISORDER
     Dosage: 60 MG
     Dates: start: 20060406
  2. LUMIGAN [Concomitant]
  3. CALCIUM (CALCIUM) [Concomitant]

REACTIONS (6)
  - ARTHRALGIA [None]
  - EAR PAIN [None]
  - LYMPHADENOPATHY [None]
  - NECK PAIN [None]
  - SLEEP DISORDER [None]
  - SOMNOLENCE [None]
